FAERS Safety Report 23826666 (Version 1)
Quarter: 2024Q2

REPORT INFORMATION
  Report Type: Spontaneous
  Country: US (occurrence: US)
  Receive Date: 20240507
  Receipt Date: 20240507
  Transmission Date: 20240715
  Serious: No
  Sender: FDA-Public Use
  Company Number: US-UCBSA-2024006422

PATIENT
  Sex: Female

DRUGS (1)
  1. CIMZIA [Suspect]
     Active Substance: CERTOLIZUMAB PEGOL
     Indication: Psoriatic arthropathy
     Dosage: 400 MILLIGRAM, EV 4 WEEKS
     Route: 058

REACTIONS (7)
  - Influenza [Unknown]
  - Weight increased [Unknown]
  - Blood pressure increased [Unknown]
  - Dry skin [Unknown]
  - Pruritus [Unknown]
  - Onychoclasis [Unknown]
  - Inappropriate schedule of product administration [Unknown]
